FAERS Safety Report 5310516-1 (Version None)
Quarter: 2007Q2

REPORT INFORMATION
  Report Type: 
  Country: None (occurrence: None)
  Receive Date: 20070427
  Receipt Date: 20070417
  Transmission Date: 20071010
  Serious: Yes (Other)
  Sender: FDA-Public Use
  Company Number: US-GENENTECH-237367

PATIENT
  Sex: Female
  Weight: 70.294 kg

DRUGS (8)
  1. RITUXAN [Suspect]
     Indication: MULTIPLE SCLEROSIS
     Dosage: UNK, Q3M
     Route: 042
  2. NORCO [Concomitant]
     Indication: DRUG USE FOR UNKNOWN INDICATION
  3. BACLOFEN [Concomitant]
     Indication: DRUG USE FOR UNKNOWN INDICATION
  4. COUMADIN [Concomitant]
     Indication: DRUG USE FOR UNKNOWN INDICATION
  5. CYMBALTA [Concomitant]
     Indication: DRUG USE FOR UNKNOWN INDICATION
  6. SYNTHROID [Concomitant]
     Indication: DRUG USE FOR UNKNOWN INDICATION
  7. MYSOLINE [Concomitant]
     Indication: DRUG USE FOR UNKNOWN INDICATION
  8. STEROID (NAME UNKNOWN) [Concomitant]
     Indication: PREMEDICATION
     Route: 042

REACTIONS (1)
  - SWELLING [None]
